FAERS Safety Report 8065219-X (Version None)
Quarter: 2012Q1

REPORT INFORMATION
  Report Type: 
  Country: None (occurrence: None)
  Receive Date: 20120124
  Receipt Date: 20120112
  Transmission Date: 20120608
  Serious: Yes (Other)
  Sender: FDA-Public Use
  Company Number: US-JNJFOC-20120105615

PATIENT
  Age: 79 Year
  Sex: Female
  Weight: 52.62 kg

DRUGS (4)
  1. EXTRA STRENGTH TYLENOL [Suspect]
     Indication: RHEUMATOID ARTHRITIS
     Dosage: 2 CAPLETS  THREE TIMES A DAY
     Route: 048
  2. METHOTREXATE [Concomitant]
     Indication: RHEUMATOID ARTHRITIS
     Dosage: 3 PILLS FOR 30 YEARS
     Route: 065
  3. EXTRA STRENGTH TYLENOL [Suspect]
     Route: 048
  4. PREDNISONE [Concomitant]
     Indication: RHEUMATOID ARTHRITIS
     Dosage: 30 YEARS
     Route: 065

REACTIONS (1)
  - HAEMATEMESIS [None]
